FAERS Safety Report 7794422-9 (Version None)
Quarter: 2011Q4

REPORT INFORMATION
  Report Type: 
  Country: None (occurrence: None)
  Receive Date: 20111004
  Receipt Date: 20111004
  Transmission Date: 20120403
  Serious: Yes (Hospitalization)
  Sender: FDA-Public Use
  Company Number: None

PATIENT
  Age: 80 Year
  Sex: Male
  Weight: 71.667 kg

DRUGS (1)
  1. PRADAXA [Suspect]
     Indication: MYOCARDIAL INFARCTION
     Dosage: ONE CAPSULE
     Route: 048
     Dates: start: 20110608, end: 20110929

REACTIONS (2)
  - VENOUS THROMBOSIS [None]
  - DRUG INTERACTION [None]
